FAERS Safety Report 4884865-5 (Version None)
Quarter: 2006Q1

REPORT INFORMATION
  Report Type: 
  Country: None (occurrence: None)
  Receive Date: 20060119
  Receipt Date: 20060106
  Transmission Date: 20060701
  Serious: Yes (Disabling)
  Sender: FDA-Public Use
  Company Number: JP-JPN-A200600026

PATIENT
  Age: 66 Year
  Sex: Male
  Weight: 60 kg

DRUGS (13)
  1. VALTREX [Suspect]
     Indication: HERPES ZOSTER
     Dosage: 1000MG PER DAY
     Route: 048
     Dates: start: 20060102
  2. VALTREX [Suspect]
     Dosage: 500MG PER DAY
     Route: 048
     Dates: start: 20060104
  3. ODRIC [Concomitant]
     Indication: HYPERTENSION
     Dosage: 1MG PER DAY
     Route: 048
  4. UNIPHYL [Concomitant]
     Indication: BRONCHITIS
     Dosage: 400MG PER DAY
     Route: 048
  5. ALLELOCK [Concomitant]
     Indication: SEASONAL ALLERGY
     Dosage: 20MG PER DAY
     Route: 048
  6. PHOSBLOCK [Concomitant]
     Indication: BLOOD PHOSPHORUS INCREASED
     Dosage: 6750MG PER DAY
     Route: 048
  7. FULSTAN [Concomitant]
     Indication: HYPERPARATHYROIDISM SECONDARY
     Dosage: .15MCG PER DAY
     Route: 048
  8. DIART [Concomitant]
     Indication: HYPERTENSION
     Dosage: 120MG PER DAY
     Route: 048
  9. HALCION [Concomitant]
     Indication: INSOMNIA
     Dosage: .5MG PER DAY
     Route: 048
  10. TANKARU [Concomitant]
     Indication: BLOOD PHOSPHORUS INCREASED
     Dosage: 10000MG PER DAY
     Route: 048
  11. GASMOTIN [Concomitant]
     Indication: GASTRITIS
     Dosage: 20MG PER DAY
     Route: 048
  12. COMELIAN [Concomitant]
     Indication: ANGINA PECTORIS
     Dosage: 200MG PER DAY
     Route: 048
  13. NORVASC [Concomitant]
     Indication: HYPERTENSION
     Dosage: 20MG PER DAY
     Route: 048

REACTIONS (2)
  - DEPRESSED LEVEL OF CONSCIOUSNESS [None]
  - VERTIGO [None]
